FAERS Safety Report 17892509 (Version 3)
Quarter: 2021Q1

REPORT INFORMATION
  Report Type: Spontaneous
  Country: IT (occurrence: IT)
  Receive Date: 20200612
  Receipt Date: 20210203
  Transmission Date: 20210419
  Serious: Yes (Other)
  Sender: FDA-Public Use
  Company Number: IT-SAMSUNG BIOEPIS-SB-2020-18895

PATIENT
  Age: 9 Month
  Sex: Male

DRUGS (9)
  1. LOW MOLECULAR WEIGHT HEPARIN [Concomitant]
     Active Substance: UNSPECIFIED INGREDIENT
     Indication: THROMBOPHLEBITIS SUPERFICIAL
     Dosage: UNKNOWN, CONTINUED FOR 3 MONTHS
     Route: 065
  2. METHYLPREDNISOLONE. [Concomitant]
     Active Substance: METHYLPREDNISOLONE
     Indication: KAWASAKI^S DISEASE
  3. LOW MOLECULAR WEIGHT HEPARIN [Concomitant]
     Active Substance: UNSPECIFIED INGREDIENT
     Indication: ANTICOAGULANT THERAPY
     Dosage: UNKNOWN
     Route: 065
  4. CLOPIDOGREL [Concomitant]
     Active Substance: CLOPIDOGREL BISULFATE
     Indication: ANTIPLATELET THERAPY
     Dosage: ON DAY NINE
     Route: 065
  5. IMMUNOGLOBULIN [Concomitant]
     Indication: PRODUCT USED FOR UNKNOWN INDICATION
     Dosage: UNKNOWN, SECOND DOSE ON DAY 14
     Route: 042
  6. INFLIXIMAB [Suspect]
     Active Substance: INFLIXIMAB
     Indication: KAWASAKI^S DISEASE
     Route: 065
  7. METHYLPREDNISOLONE. [Concomitant]
     Active Substance: METHYLPREDNISOLONE
     Indication: PYREXIA
     Dosage: UNKNOWN
     Route: 065
  8. IMMUNOGLOBULIN [Concomitant]
     Indication: KAWASAKI^S DISEASE
     Dosage: ON DAY NINE
     Route: 042
  9. METHYLPREDNISOLONE. [Concomitant]
     Active Substance: METHYLPREDNISOLONE
     Indication: INFLAMMATORY MARKER INCREASED
     Dosage: PLUSE ON DAY 20
     Route: 065

REACTIONS (6)
  - Tachycardia [Recovered/Resolved]
  - Off label use [Unknown]
  - Drug ineffective for unapproved indication [Unknown]
  - Drug resistance [Unknown]
  - Coronary artery aneurysm [Recovered/Resolved]
  - Product use issue [Unknown]
